FAERS Safety Report 15741693 (Version 1)
Quarter: 2018Q4

REPORT INFORMATION
  Report Type: Spontaneous
  Country: US (occurrence: US)
  Receive Date: 20181219
  Receipt Date: 20181219
  Transmission Date: 20190205
  Serious: No
  Sender: FDA-Public Use
  Company Number: US-IMPAX LABORATORIES, LLC-2018-IPXL-02661

PATIENT
  Sex: Female

DRUGS (3)
  1. COLESTIPOL HYDROCHLORIDE. [Suspect]
     Active Substance: COLESTIPOL HYDROCHLORIDE
     Dosage: 1 G, ONE TABLET, TWO TIMES A DAY
     Route: 065
     Dates: start: 2018
  2. HYDROCHLOROTHIAZIDE;POTASSIUM [Concomitant]
     Indication: PRODUCT USED FOR UNKNOWN INDICATION
     Dosage: 20 MEQ, 1 /DAY
     Route: 065
  3. COLESTIPOL HYDROCHLORIDE. [Suspect]
     Active Substance: COLESTIPOL HYDROCHLORIDE
     Indication: GALLBLADDER DISORDER
     Dosage: 1 G, TWO TABLETS, TWO TIMES A DAY
     Route: 065
     Dates: start: 20180312

REACTIONS (3)
  - Treatment noncompliance [Not Recovered/Not Resolved]
  - Drug effect incomplete [Not Recovered/Not Resolved]
  - Product physical issue [Unknown]

NARRATIVE: CASE EVENT DATE: 2018
